FAERS Safety Report 9553317 (Version 1)
Quarter: 2013Q3

REPORT INFORMATION
  Report Type: Spontaneous
  Country: US (occurrence: None)
  Receive Date: 20130724
  Receipt Date: 20130724
  Transmission Date: 20140515
  Serious: Yes (Hospitalization)
  Sender: FDA-Public Use
  Company Number: PHEH2013US009433

PATIENT
  Age: 80 Year
  Sex: Male
  Weight: 127 kg

DRUGS (2)
  1. GLEEVEC [Suspect]
     Indication: GASTROINTESTINAL STROMAL TUMOUR
     Route: 048
     Dates: start: 201211, end: 201304
  2. GLEEVEC [Suspect]
     Indication: METASTASIS
     Route: 048
     Dates: start: 201211, end: 201304

REACTIONS (2)
  - Gastrointestinal haemorrhage [None]
  - Oesophageal ulcer [None]
